FAERS Safety Report 4735576-8 (Version None)
Quarter: 2005Q3

REPORT INFORMATION
  Report Type: 
  Country: None (occurrence: None)
  Receive Date: 20050803
  Receipt Date: 20050720
  Transmission Date: 20060218
  Serious: Yes (Other)
  Sender: FDA-Public Use
  Company Number: MK200506-0185-2

PATIENT
  Age: 63 Year
  Sex: Female

DRUGS (1)
  1. NEUTROSPEC [Suspect]
     Indication: DECUBITUS ULCER
     Dosage: 22 MCI, ONE TIME, IV
     Route: 042
     Dates: start: 20050608, end: 20050608

REACTIONS (4)
  - HYPOTENSION [None]
  - LETHARGY [None]
  - LOSS OF CONSCIOUSNESS [None]
  - OXYGEN SATURATION DECREASED [None]
